FAERS Safety Report 22092051 (Version 2)
Quarter: 2023Q2

REPORT INFORMATION
  Report Type: Spontaneous
  Country: US (occurrence: US)
  Receive Date: 20230314
  Receipt Date: 20230404
  Transmission Date: 20230722
  Serious: No
  Sender: FDA-Public Use
  Company Number: US-AMGEN-USASP2023044046

PATIENT
  Sex: Male

DRUGS (1)
  1. REPATHA [Suspect]
     Active Substance: EVOLOCUMAB
     Indication: Product used for unknown indication
     Dosage: 140 MILLIGRAM, EVERY 2 WEEKS
     Route: 058

REACTIONS (2)
  - Product storage error [Recovering/Resolving]
  - Circumstance or information capable of leading to medication error [Recovering/Resolving]

NARRATIVE: CASE EVENT DATE: 20230305
